FAERS Safety Report 7141106-6 (Version None)
Quarter: 2010Q4

REPORT INFORMATION
  Report Type: 
  Country: None (occurrence: None)
  Receive Date: 20101202
  Receipt Date: 20101202
  Transmission Date: 20110411
  Serious: Yes (Hospitalization)
  Sender: FDA-Public Use
  Company Number: None

PATIENT
  Age: 54 Year
  Sex: Female

DRUGS (5)
  1. PEGASYS [Suspect]
     Indication: HEPATITIS C
     Dosage: ONCE WEEKLY SC
     Route: 058
     Dates: start: 20100716, end: 20100723
  2. RIBAVIRIN [Suspect]
     Indication: HEPATITIS C
     Dosage: 400 MG ONCE DAILY ORAL
     Route: 048
     Dates: start: 20100716, end: 20100723
  3. ALBUTEROL [Concomitant]
  4. ADVAIR [Concomitant]
  5. HYDROCHLOROTHIAZIDE [Concomitant]

REACTIONS (7)
  - BLISTER [None]
  - CHILLS [None]
  - HEADACHE [None]
  - PYREXIA [None]
  - RASH GENERALISED [None]
  - RASH MACULO-PAPULAR [None]
  - TONGUE BLISTERING [None]
